FAERS Safety Report 19393669 (Version 1)
Quarter: 2021Q2

REPORT INFORMATION
  Report Type: Spontaneous
  Country: US (occurrence: US)
  Receive Date: 20210608
  Receipt Date: 20210608
  Transmission Date: 20210717
  Serious: Yes (Other)
  Sender: FDA-Public Use
  Company Number: None

PATIENT
  Age: 75 Year
  Sex: Female
  Weight: 52.16 kg

DRUGS (10)
  1. PATADAY [Suspect]
     Active Substance: OLOPATADINE HYDROCHLORIDE
     Indication: EYE ALLERGY
     Dosage: ?          QUANTITY:1 GTT DROP(S);?
     Route: 047
     Dates: start: 20210217, end: 20210219
  2. ESTRATEST [Concomitant]
     Active Substance: ESTROGENS, ESTERIFIED\METHYLTESTOSTERONE
  3. MAGNESIUM [Concomitant]
     Active Substance: MAGNESIUM
  4. OXYCODONE [Concomitant]
     Active Substance: OXYCODONE
  5. ASPIRIN. [Concomitant]
     Active Substance: ASPIRIN
  6. VITAMIN C [Concomitant]
     Active Substance: ASCORBIC ACID
  7. VITAMIN E [Concomitant]
     Active Substance: .ALPHA.-TOCOPHEROL
  8. ASPIRIN 325 MG [Concomitant]
     Active Substance: ASPIRIN
  9. CELEXA [Concomitant]
     Active Substance: CITALOPRAM HYDROBROMIDE
  10. PROTONIX [Concomitant]
     Active Substance: PANTOPRAZOLE SODIUM

REACTIONS (1)
  - Vitreous floaters [None]

NARRATIVE: CASE EVENT DATE: 20210219
